FAERS Safety Report 5291366-1 (Version None)
Quarter: 2007Q2

REPORT INFORMATION
  Report Type: 
  Country: None (occurrence: None)
  Receive Date: 20070402
  Receipt Date: 20070316
  Transmission Date: 20071010
  Serious: Yes (Death, Other)
  Sender: FDA-Public Use
  Company Number: 2007JP000813

PATIENT
  Age: 45 Year
  Sex: Female

DRUGS (6)
  1. PROGRAF [Suspect]
     Indication: BONE MARROW TRANSPLANT
  2. FUNGUARD (MICAFUNGIN) INJECTION [Suspect]
     Indication: CANDIDIASIS
     Dosage: IV DRIP
     Route: 041
  3. VORICONAZOLE (VORICONAZOLE) [Concomitant]
  4. PREDNISOLONE (PREDNISOLONE) FORMULATION UNKNOWN UNK TO UNK [Concomitant]
  5. CYCLOSPORIN A FORMULATION UNKNOWN UNK TO UNK [Concomitant]
  6. AMPHOTERICIN B, LIPOSOME (AMPHOTERICIN B, LIPOSOME) FORMULATION UNKNOW [Concomitant]

REACTIONS (5)
  - CEREBRAL HAEMORRHAGE [None]
  - ENCEPHALOPATHY [None]
  - ENDOCARDITIS [None]
  - LIVER ABSCESS [None]
  - RENAL ABSCESS [None]
